FAERS Safety Report 4777473-8 (Version None)
Quarter: 2005Q3

REPORT INFORMATION
  Report Type: 
  Country: None (occurrence: None)
  Receive Date: 20050915
  Receipt Date: 20050902
  Transmission Date: 20060218
  Serious: Yes (Other)
  Sender: FDA-Public Use
  Company Number: 2005120168

PATIENT
  Age: 89 Year
  Sex: Male

DRUGS (6)
  1. MACUGEN [Suspect]
     Indication: EYE HAEMORRHAGE
     Dosage: INTRAVENOUS
     Route: 042
     Dates: start: 20050712
  2. MACUGEN [Suspect]
     Indication: MACULAR DEGENERATION
     Dosage: INTRAVENOUS
     Route: 042
     Dates: start: 20050712
  3. NEXIUM [Concomitant]
  4. FLOMAX [Concomitant]
  5. ARTIFICIAL TEARS (ARTIFICIAL TEARS) [Concomitant]
  6. MULTIVITAMIN [Concomitant]

REACTIONS (3)
  - RETINAL DISORDER [None]
  - RETINAL TEAR [None]
  - VISUAL ACUITY REDUCED [None]
